FAERS Safety Report 4505215-X (Version None)
Quarter: 2004Q4

REPORT INFORMATION
  Report Type: 
  Country: None (occurrence: None)
  Receive Date: 20041015
  Receipt Date: 20040709
  Transmission Date: 20050328
  Serious: Yes (Other)
  Sender: FDA-Public Use
  Company Number: 2004047833

PATIENT
  Sex: 0

DRUGS (1)
  1. NEURONTIN [Suspect]

REACTIONS (1)
  - CARDIAC FAILURE CONGESTIVE [None]
